FAERS Safety Report 16947805 (Version 1)
Quarter: 2019Q4

REPORT INFORMATION
  Report Type: Spontaneous
  Country: US (occurrence: US)
  Receive Date: 20191022
  Receipt Date: 20191022
  Transmission Date: 20200122
  Serious: No
  Sender: FDA-Public Use
  Company Number: US-ROCHE-2198689

PATIENT
  Sex: Female

DRUGS (2)
  1. ZELBORAF [Suspect]
     Active Substance: VEMURAFENIB
     Dosage: ONGOING: YES
     Route: 048
     Dates: start: 20181017
  2. ZELBORAF [Suspect]
     Active Substance: VEMURAFENIB
     Indication: COLON NEOPLASM
     Dosage: ONGOING
     Route: 048
     Dates: start: 20181010

REACTIONS (2)
  - Arthropathy [Unknown]
  - Skin reaction [Unknown]
